FAERS Safety Report 4673369-0 (Version None)
Quarter: 2005Q2

REPORT INFORMATION
  Report Type: 
  Country: None (occurrence: None)
  Receive Date: 20050524
  Receipt Date: 20050524
  Transmission Date: 20051028
  Serious: Yes (Other)
  Sender: FDA-Public Use
  Company Number: None

PATIENT
  Age: 52 Year
  Sex: Male
  Weight: 63.5036 kg

DRUGS (4)
  1. FENTANYL [Suspect]
     Indication: HIV INFECTION
     Dosage: 100 MCG/H EVERY 3 DAYS TRANSDERMAL
     Route: 062
     Dates: start: 20050401, end: 20050523
  2. FENTANYL [Suspect]
     Indication: NEUROPATHY
     Dosage: 100 MCG/H EVERY 3 DAYS TRANSDERMAL
     Route: 062
     Dates: start: 20050401, end: 20050523
  3. DOXEPIN HCL [Concomitant]
  4. VICODIN [Concomitant]

REACTIONS (3)
  - CONDITION AGGRAVATED [None]
  - PAIN [None]
  - THERAPEUTIC RESPONSE UNEXPECTED WITH DRUG SUBSTITUTION [None]
